APPROVED DRUG PRODUCT: A-METHAPRED
Active Ingredient: METHYLPREDNISOLONE SODIUM SUCCINATE
Strength: EQ 125MG BASE/VIAL
Dosage Form/Route: INJECTABLE;INJECTION
Application: A040827 | Product #001
Applicant: HOSPIRA INC
Approved: Nov 25, 2008 | RLD: No | RS: No | Type: DISCN